FAERS Safety Report 8221018-7 (Version None)
Quarter: 2012Q1

REPORT INFORMATION
  Report Type: 
  Country: None (occurrence: None)
  Receive Date: 20120320
  Receipt Date: 20120314
  Transmission Date: 20120608
  Serious: Yes (Hospitalization, Other)
  Sender: FDA-Public Use
  Company Number: FR-PFIZER INC-2012066713

PATIENT
  Sex: Female

DRUGS (7)
  1. EFFEXOR XR [Suspect]
     Dosage: 75 MG, 1X/DAY
     Route: 064
     Dates: start: 20091019, end: 20100609
  2. AMOXICILLIN TRIHYDRATE [Concomitant]
     Indication: PYELONEPHRITIS ACUTE
     Dosage: UNK
     Route: 064
     Dates: start: 20100606
  3. TERCIAN [Suspect]
     Dosage: 25 MG IN THE MORNING AND 50 MG IN THE EVENING
     Route: 064
     Dates: start: 20091019, end: 20100609
  4. ZOLPIDEM [Suspect]
     Dosage: UNK
     Route: 064
     Dates: end: 20100609
  5. OXAZEPAM [Suspect]
     Dosage: 50 MG, 2X/DAY
     Route: 064
     Dates: start: 20091019, end: 20100609
  6. TOBACCO [Suspect]
     Route: 064
  7. ALCOHOL [Suspect]

REACTIONS (7)
  - PREMATURE BABY [None]
  - FEEDING DISORDER NEONATAL [None]
  - DRUG WITHDRAWAL SYNDROME NEONATAL [None]
  - MATERNAL EXPOSURE TIMING UNSPECIFIED [None]
  - NEONATAL RESPIRATORY DISTRESS SYNDROME [None]
  - MATERNAL DRUGS AFFECTING FOETUS [None]
  - FOETAL HEART RATE DISORDER [None]
